FAERS Safety Report 9069191 (Version 1)
Quarter: 2013Q1

REPORT INFORMATION
  Report Type: Spontaneous
  Country: US (occurrence: US)
  Receive Date: 20130215
  Receipt Date: 20130215
  Transmission Date: 20140127
  Serious: Yes (Hospitalization)
  Sender: FDA-Public Use
  Company Number: US-SHIONOGI, INC-2013000118

PATIENT
  Sex: 0

DRUGS (1)
  1. NAPRELAN [Suspect]
     Dosage: 750 MG QD FOR 3 DAYS

REACTIONS (2)
  - Diverticulitis [Recovered/Resolved]
  - Gastrointestinal haemorrhage [Recovered/Resolved]
